FAERS Safety Report 19633877 (Version 1)
Quarter: 2021Q3

REPORT INFORMATION
  Report Type: Spontaneous
  Country: US (occurrence: US)
  Receive Date: 20210729
  Receipt Date: 20210729
  Transmission Date: 20211014
  Serious: Yes (Life-Threatening, Hospitalization)
  Sender: FDA-Public Use
  Company Number: None

PATIENT
  Age: 66 Year
  Sex: Male
  Weight: 101.25 kg

DRUGS (3)
  1. INFLIXIMAB BY INFUSION [Suspect]
     Active Substance: INFLIXIMAB
     Indication: ANKYLOSING SPONDYLITIS
     Dates: start: 20201221, end: 20210426
  2. CETERAZINE [Concomitant]
  3. IBUPROFEN 800 MG [Concomitant]
     Active Substance: IBUPROFEN

REACTIONS (12)
  - Gait disturbance [None]
  - Pyrexia [None]
  - Bone pain [None]
  - Pneumonia [None]
  - Dyspnoea [None]
  - Cough [None]
  - Bacterial infection [None]
  - Interstitial lung disease [None]
  - Muscle fatigue [None]
  - Asthenia [None]
  - Lung infiltration [None]
  - Chest discomfort [None]
